FAERS Safety Report 10075620 (Version 1)
Quarter: 2014Q2

REPORT INFORMATION
  Report Type: Spontaneous
  Country: US (occurrence: None)
  Receive Date: 20140411
  Receipt Date: 20140411
  Transmission Date: 20141212
  Serious: Yes (Hospitalization)
  Sender: FDA-Public Use
  Company Number: None

PATIENT
  Age: 51 Year
  Sex: Male
  Weight: 63.3 kg

DRUGS (2)
  1. CILASTATIN/IMIPENEM [Suspect]
     Route: 042
     Dates: start: 20140102, end: 20140104
  2. AMOXICILLIN/CLAVULANATE [Suspect]
     Route: 048
     Dates: start: 20140105, end: 20140115

REACTIONS (4)
  - Tachycardia [None]
  - Hypotension [None]
  - Leukocytosis [None]
  - Clostridium difficile infection [None]
